FAERS Safety Report 11741277 (Version 6)
Quarter: 2017Q1

REPORT INFORMATION
  Report Type: Spontaneous
  Country: US (occurrence: US)
  Receive Date: 20151116
  Receipt Date: 20170210
  Transmission Date: 20170428
  Serious: Yes (Hospitalization, Other)
  Sender: FDA-Public Use
  Company Number: PHEH2015US022920

PATIENT
  Sex: Female

DRUGS (2)
  1. ONDANSETRON [Suspect]
     Active Substance: ONDANSETRON
     Indication: PRODUCT USED FOR UNKNOWN INDICATION
     Route: 048
  2. ZOFRAN [Suspect]
     Active Substance: ONDANSETRON HYDROCHLORIDE
     Indication: VOMITING IN PREGNANCY
     Route: 048

REACTIONS (13)
  - Premature labour [Unknown]
  - Premature rupture of membranes [Unknown]
  - Genitourinary tract infection [Unknown]
  - Anxiety [Unknown]
  - Premature delivery [Unknown]
  - Maternal exposure during pregnancy [Unknown]
  - Pain [Unknown]
  - Product use issue [Unknown]
  - Anhedonia [Unknown]
  - Injury [Unknown]
  - Pyelonephritis [Unknown]
  - Cystitis [Unknown]
  - Emotional distress [Unknown]
